FAERS Safety Report 15093049 (Version 1)
Quarter: 2018Q2

REPORT INFORMATION
  Report Type: Spontaneous
  Country: US (occurrence: US)
  Receive Date: 20180629
  Receipt Date: 20180629
  Transmission Date: 20180711
  Serious: Yes (Other)
  Sender: FDA-Public Use
  Company Number: US-SA-2018SA170780

PATIENT
  Age: 58 Year
  Sex: Female

DRUGS (13)
  1. ASPIRINE [Concomitant]
     Active Substance: ASPIRIN
  2. VITAMIN D [Concomitant]
     Active Substance: CHOLECALCIFEROL
  3. BUSPAR [Concomitant]
     Active Substance: BUSPIRONE HYDROCHLORIDE
  4. GABAPENTIN. [Concomitant]
     Active Substance: GABAPENTIN
  5. METFORMIN [Concomitant]
     Active Substance: METFORMIN HYDROCHLORIDE
  6. CYMBALTA [Concomitant]
     Active Substance: DULOXETINE HYDROCHLORIDE
  7. GLIPIZIDE. [Concomitant]
     Active Substance: GLIPIZIDE
  8. OXYCODONE [Concomitant]
     Active Substance: OXYCODONE
  9. AUBAGIO [Suspect]
     Active Substance: TERIFLUNOMIDE
     Indication: MULTIPLE SCLEROSIS
     Dosage: 14 MG, QD
     Route: 048
     Dates: start: 20161012
  10. ATORVASTATIN [Concomitant]
     Active Substance: ATORVASTATIN
  11. KEPPRA [Concomitant]
     Active Substance: LEVETIRACETAM
  12. VASOTEC [ENALAPRIL MALEATE] [Concomitant]
  13. B12 [MECOBALAMIN] [Concomitant]

REACTIONS (2)
  - Mental impairment [Unknown]
  - Memory impairment [Unknown]

NARRATIVE: CASE EVENT DATE: 20180614
